FAERS Safety Report 9604301 (Version 1)
Quarter: 2013Q4

REPORT INFORMATION
  Report Type: Report from Study
  Country: BR (occurrence: BR)
  Receive Date: 20131008
  Receipt Date: 20131008
  Transmission Date: 20140711
  Serious: Yes (Other)
  Sender: FDA-Public Use
  Company Number: PHHY2013BR112232

PATIENT
  Age: 51 Year
  Sex: Female
  Weight: 56 kg

DRUGS (3)
  1. GILENYA [Suspect]
     Indication: MULTIPLE SCLEROSIS
     Dosage: 0.5 MG, QD
     Route: 048
     Dates: start: 20130128
  2. PURAN T4 [Concomitant]
  3. RIVOTRIL [Concomitant]

REACTIONS (1)
  - Eye injury [Not Recovered/Not Resolved]
